FAERS Safety Report 9967133 (Version 2)
Quarter: 2014Q1

REPORT INFORMATION
  Report Type: Report from Study
  Country: PR (occurrence: PR)
  Receive Date: 20140305
  Receipt Date: 20140305
  Transmission Date: 20141002
  Serious: No
  Sender: FDA-Public Use
  Company Number: PR-ABBVIE-13P-131-1042226-00

PATIENT
  Sex: Female
  Weight: 69.92 kg

DRUGS (9)
  1. HUMIRA [Suspect]
     Indication: RHEUMATOID ARTHRITIS
     Route: 058
     Dates: start: 201210, end: 201306
  2. RELAFEN [Concomitant]
     Indication: RHEUMATOID ARTHRITIS
     Route: 048
  3. NAPROSYN [Concomitant]
     Indication: RHEUMATOID ARTHRITIS
     Route: 048
  4. FLEXERIL [Concomitant]
     Indication: RHEUMATOID ARTHRITIS
     Route: 048
  5. TRAMADOL [Concomitant]
     Indication: PAIN
     Route: 048
  6. ZOLOFT [Concomitant]
     Indication: DEPRESSION
     Route: 048
  7. BUSPAR [Concomitant]
     Indication: DEPRESSION
     Route: 048
  8. AMBIEN [Concomitant]
     Indication: INSOMNIA
     Route: 048
  9. SOLVENT [Concomitant]
     Indication: ASTHMA
     Route: 055

REACTIONS (4)
  - Onychomycosis [Unknown]
  - Nail infection [Recovering/Resolving]
  - Gingivitis [Recovering/Resolving]
  - Urticaria [Recovering/Resolving]
